FAERS Safety Report 18654733 (Version 1)
Quarter: 2020Q4

REPORT INFORMATION
  Report Type: Spontaneous
  Country: AT (occurrence: AT)
  Receive Date: 20201223
  Receipt Date: 20201223
  Transmission Date: 20210114
  Serious: Yes (Other)
  Sender: FDA-Public Use
  Company Number: AT-ASTRAZENECA-2020SF71058

PATIENT
  Age: 59 Year
  Sex: Female

DRUGS (10)
  1. CANDEBLO PLUS [Suspect]
     Active Substance: CANDESARTAN CILEXETIL\HYDROCHLOROTHIAZIDE
     Indication: PRODUCT USED FOR UNKNOWN INDICATION
     Dosage: 6 MG, UNK6.0MG UNKNOWN
     Route: 048
     Dates: start: 20200921, end: 20201004
  2. SEROQUEL [Suspect]
     Active Substance: QUETIAPINE FUMARATE
     Dosage: 50 MG, UNK50.0MG UNKNOWN
     Route: 048
     Dates: start: 20200928, end: 20200930
  3. DEPAKINE [Suspect]
     Active Substance: VALPROATE SODIUM
     Indication: PRODUCT USED FOR UNKNOWN INDICATION
     Dosage: 2000 MG, UNK
     Route: 065
     Dates: start: 20200922, end: 20200925
  4. RISPERDAL [Suspect]
     Active Substance: RISPERIDONE
     Dosage: 3 MG, UNK3.0MG UNKNOWN
     Route: 065
     Dates: start: 20200929, end: 20201001
  5. DEPAKINE [Suspect]
     Active Substance: VALPROATE SODIUM
     Dosage: 1500 MG, UNK
     Route: 065
     Dates: start: 20200926, end: 20200928
  6. RISPERDAL [Suspect]
     Active Substance: RISPERIDONE
     Indication: PRODUCT USED FOR UNKNOWN INDICATION
     Dosage: 4 MG, UNK4.0MG UNKNOWN
     Route: 065
     Dates: start: 20200925, end: 20200928
  7. SEROQUEL [Suspect]
     Active Substance: QUETIAPINE FUMARATE
     Indication: PRODUCT USED FOR UNKNOWN INDICATION
     Dosage: 100 MG, UNK100.0MG UNKNOWN
     Route: 048
     Dates: start: 20200921, end: 20200927
  8. ABILIFY [Suspect]
     Active Substance: ARIPIPRAZOLE
     Indication: PRODUCT USED FOR UNKNOWN INDICATION
     Dosage: 20 MG, UNK
     Route: 065
     Dates: start: 2020, end: 2020
  9. TEMESTA (LORAZEPAM) [Suspect]
     Active Substance: LORAZEPAM
     Indication: PRODUCT USED FOR UNKNOWN INDICATION
     Dosage: 2.5 MG, UNK2.5MG UNKNOWN
     Route: 065
     Dates: start: 20200921, end: 20201004
  10. NOMEXOR [Suspect]
     Active Substance: NEBIVOLOL HYDROCHLORIDE
     Indication: PRODUCT USED FOR UNKNOWN INDICATION
     Dosage: 5 MG, UNK
     Route: 065
     Dates: start: 20200921, end: 20201004

REACTIONS (4)
  - Delirium [Recovered/Resolved]
  - Dysphagia [Unknown]
  - Blood glucose decreased [Unknown]
  - Psychotic behaviour [Unknown]

NARRATIVE: CASE EVENT DATE: 2020
